FAERS Safety Report 8069910 (Version 2)
Quarter: 2015Q3

REPORT INFORMATION
  Report Type: Report from Study
  Country: FR (occurrence: FR)
  Receive Date: 20110804
  Receipt Date: 20150826
  Transmission Date: 20151125
  Serious: Yes (Hospitalization, Other)
  Sender: FDA-Public Use
  Company Number: FR-PFIZER INC-2011170937

PATIENT
  Age: 56 Year
  Sex: Female

DRUGS (3)
  1. ARACYTINE [Suspect]
     Active Substance: CYTARABINE
     Indication: ACUTE MYELOID LEUKAEMIA
     Dosage: 1620 MG, 2X/DAY
     Route: 042
     Dates: start: 20081028, end: 20081102
  2. NOVANTRONE [Suspect]
     Active Substance: MITOXANTRONE HYDROCHLORIDE
     Indication: ACUTE MYELOID LEUKAEMIA
     Dosage: 19.4 MG, 1X/DAY
     Route: 042
     Dates: start: 20081028, end: 20081029
  3. MYLOTARG [Suspect]
     Active Substance: GEMTUZUMAB OZOGAMICIN
     Indication: ACUTE MYELOID LEUKAEMIA
     Dosage: 9.7 MG, 1X/DAY
     Route: 042
     Dates: start: 20081031, end: 20081031

REACTIONS (4)
  - Bone marrow failure [Recovered/Resolved]
  - Pyrexia [Recovered/Resolved]
  - Thrombocytopenia [Recovered/Resolved]
  - Gastrointestinal haemorrhage [Recovered/Resolved]

NARRATIVE: CASE EVENT DATE: 20081106
